FAERS Safety Report 18675492 (Version 15)
Quarter: 2021Q2

REPORT INFORMATION
  Report Type: Spontaneous
  Country: CA (occurrence: CA)
  Receive Date: 20201229
  Receipt Date: 20210511
  Transmission Date: 20210717
  Serious: Yes (Hospitalization)
  Sender: FDA-Public Use
  Company Number: CA-BIOGEN-2020BI00921621

PATIENT
  Age: 23 Year
  Sex: Female

DRUGS (9)
  1. TYSABRI [Suspect]
     Active Substance: NATALIZUMAB
     Route: 042
     Dates: start: 20210129, end: 20210325
  2. OCREVUS [Concomitant]
     Active Substance: OCRELIZUMAB
     Indication: PRODUCT USED FOR UNKNOWN INDICATION
     Route: 042
     Dates: start: 20210415
  3. TYSABRI [Suspect]
     Active Substance: NATALIZUMAB
     Indication: RELAPSING-REMITTING MULTIPLE SCLEROSIS
     Dosage: INFUSED OVER 1 HOUR
     Route: 042
     Dates: start: 20120913, end: 20200827
  4. TYSABRI [Suspect]
     Active Substance: NATALIZUMAB
     Route: 042
     Dates: start: 20120913, end: 20200827
  5. TYSABRI [Suspect]
     Active Substance: NATALIZUMAB
     Route: 042
     Dates: start: 20120913, end: 20210325
  6. TYSABRI [Suspect]
     Active Substance: NATALIZUMAB
     Route: 042
     Dates: start: 20120913
  7. TYSABRI [Suspect]
     Active Substance: NATALIZUMAB
     Route: 042
     Dates: start: 20201225
  8. PIPERACILLIN. [Concomitant]
     Active Substance: PIPERACILLIN SODIUM
     Indication: PRODUCT USED FOR UNKNOWN INDICATION
     Dosage: EVERY 6 HOURS
     Route: 042
  9. TAZOBACTAM [Concomitant]
     Active Substance: TAZOBACTAM
     Indication: PRODUCT USED FOR UNKNOWN INDICATION
     Dosage: EVERY 6 HOURS
     Route: 042

REACTIONS (16)
  - Fall [Recovered/Resolved]
  - Pyrexia [Not Recovered/Not Resolved]
  - Prescribed underdose [Recovered/Resolved]
  - Cognitive disorder [Unknown]
  - Sepsis [Unknown]
  - Motor dysfunction [Unknown]
  - Fungal infection [Unknown]
  - General physical health deterioration [Unknown]
  - Movement disorder [Unknown]
  - Decreased eye contact [Unknown]
  - Tachycardia [Recovered/Resolved]
  - Drug screen positive [Unknown]
  - Muscle spasticity [Unknown]
  - Urinary tract infection [Unknown]
  - Multiple sclerosis relapse [Unknown]
  - Gaze palsy [Unknown]

NARRATIVE: CASE EVENT DATE: 20120913
